FAERS Safety Report 7443526-9 (Version None)
Quarter: 2011Q2

REPORT INFORMATION
  Report Type: 
  Country: None (occurrence: None)
  Receive Date: 20110428
  Receipt Date: 20110421
  Transmission Date: 20111010
  Serious: Yes (Death, Other)
  Sender: FDA-Public Use
  Company Number: JP-AMGEN-JPNCT2010006075

PATIENT
  Age: 76 Year
  Sex: Male
  Weight: 55 kg

DRUGS (5)
  1. PANITUMUMAB [Suspect]
     Indication: COLORECTAL CANCER
     Dosage: 6 MG/KG, Q2WK
     Route: 041
     Dates: start: 20101005, end: 20101020
  2. CALCIUM LEVOFOLINATE [Suspect]
     Indication: COLORECTAL CANCER
     Route: 041
     Dates: start: 20101005, end: 20101021
  3. IRINOTECAN HCL [Suspect]
     Indication: COLORECTAL CANCER
     Route: 041
     Dates: start: 20101005, end: 20101021
  4. FLUOROURACIL [Suspect]
     Indication: COLORECTAL CANCER
     Route: 040
     Dates: start: 20101005, end: 20101021
  5. FLUOROURACIL [Suspect]
     Route: 041
     Dates: start: 20101005, end: 20101021

REACTIONS (5)
  - PANCYTOPENIA [None]
  - CARDIAC FAILURE [None]
  - PNEUMONIA [None]
  - DERMATITIS ACNEIFORM [None]
  - STOMATITIS [None]
